FAERS Safety Report 10265465 (Version 1)
Quarter: 2014Q2

REPORT INFORMATION
  Report Type: Spontaneous
  Country: US (occurrence: None)
  Receive Date: 20140624
  Receipt Date: 20140624
  Transmission Date: 20141212
  Serious: Yes (Other)
  Sender: FDA-Public Use
  Company Number: 2014AMD00007

PATIENT
  Age: 37 Year
  Sex: Female

DRUGS (7)
  1. EPINEPHRINE [Suspect]
     Indication: HYPOTENSION
     Route: 042
  2. HYDROCORTISONE [Suspect]
     Indication: HYPOTENSION
     Route: 042
  3. PROTAMINE [Suspect]
  4. DIPHENHYDRAMINE [Suspect]
     Indication: HYPOTENSION
     Route: 042
  5. VASOPRESSIN [Suspect]
     Route: 042
  6. DESMOPRESSIN [Suspect]
     Indication: HYPOTENSION
     Route: 042
  7. LEVOTHYROXINE [Suspect]
     Indication: HYPOTENSION
     Route: 042

REACTIONS (2)
  - Stress cardiomyopathy [None]
  - Stress cardiomyopathy [None]
